FAERS Safety Report 9331470 (Version 1)
Quarter: 2013Q2

REPORT INFORMATION
  Report Type: Other
  Country: GB (occurrence: GB)
  Receive Date: 20130605
  Receipt Date: 20130605
  Transmission Date: 20140414
  Serious: Yes (Life-Threatening, Hospitalization)
  Sender: FDA-Public Use
  Company Number: GB-WATSON-2013-09725

PATIENT
  Age: 70 Year
  Sex: Male
  Weight: 93 kg

DRUGS (9)
  1. PIOGLITAZONE (UNKNOWN) [Suspect]
     Indication: PRODUCT USED FOR UNKNOWN INDICATION
     Dosage: 15 MG, DAILY  PIOGLITAZONE TAKEN FOR 2.5 YEARS
     Route: 048
     Dates: start: 201009
  2. PIOGLITAZONE (UNKNOWN) [Suspect]
     Dosage: 15 MG, BID  PIOGLITAZONE TAKEN FOR 2.5 YEARS
     Route: 048
     Dates: start: 201101, end: 20130415
  3. METFORMIN [Concomitant]
     Indication: PRODUCT USED FOR UNKNOWN INDICATION
     Dosage: UNKNOWN
     Route: 048
  4. METFORMIN [Concomitant]
     Dosage: 1 G, BID  MODIFIED RELEASE
     Route: 048
     Dates: start: 201009
  5. EZETIMIBE [Concomitant]
     Indication: PRODUCT USED FOR UNKNOWN INDICATION
     Dosage: 10MG
     Route: 048
     Dates: start: 200910
  6. MIZOLASTINE [Concomitant]
     Indication: PRODUCT USED FOR UNKNOWN INDICATION
     Dosage: UNKNOWN
     Route: 065
  7. QUININE SULPHATE [Concomitant]
     Indication: PRODUCT USED FOR UNKNOWN INDICATION
     Dosage: UNKNOWN
     Route: 065
  8. NAPROXEN [Concomitant]
     Indication: PRODUCT USED FOR UNKNOWN INDICATION
     Dosage: A FEW DAYS PRIOR TO EFFUSION
     Route: 065
  9. OMEPRAZOLE [Concomitant]
     Indication: PRODUCT USED FOR UNKNOWN INDICATION
     Dosage: A FEW DAYS PRIOR TO EFFUSION
     Route: 065

REACTIONS (1)
  - Pericardial effusion [Recovered/Resolved]
